FAERS Safety Report 11371262 (Version 2)
Quarter: 2015Q3

REPORT INFORMATION
  Report Type: Spontaneous
  Country: FI (occurrence: FI)
  Receive Date: 20150812
  Receipt Date: 20150817
  Transmission Date: 20151125
  Serious: Yes (Other)
  Sender: FDA-Public Use
  Company Number: FI-TEVA-585123ISR

PATIENT
  Age: 46 Year
  Sex: Female

DRUGS (8)
  1. LEVOTHYROXINE. [Interacting]
     Active Substance: LEVOTHYROXINE
     Dosage: .15 MILLIGRAM DAILY;
  2. LEVETIRACETAM. [Suspect]
     Active Substance: LEVETIRACETAM
     Indication: EPILEPSY
     Dosage: 2000 MILLIGRAM DAILY;
     Route: 065
  3. LEVOTHYROXINE. [Interacting]
     Active Substance: LEVOTHYROXINE
     Indication: HYPOTHYROIDISM
     Dosage: .2 MILLIGRAM DAILY;
     Route: 065
  4. LEVOTHYROXINE. [Interacting]
     Active Substance: LEVOTHYROXINE
     Dosage: .4 MILLIGRAM DAILY;
  5. ETORICOXIB [Concomitant]
     Active Substance: ETORICOXIB
     Dosage: 90 MILLIGRAM DAILY; STABLE DOSE
  6. TRAMADOL. [Concomitant]
     Active Substance: TRAMADOL
     Indication: PAIN
     Dosage: 400 MILLIGRAM DAILY;
  7. TRAMADOL. [Concomitant]
     Active Substance: TRAMADOL
     Dosage: 200 MILLIGRAM DAILY;
  8. PREGABALIN. [Concomitant]
     Active Substance: PREGABALIN
     Dosage: 450 MILLIGRAM DAILY; STABLE DOSE

REACTIONS (2)
  - Drug interaction [Recovering/Resolving]
  - Hyperthyroidism [Recovered/Resolved]
